FAERS Safety Report 4939199-7 (Version None)
Quarter: 2006Q1

REPORT INFORMATION
  Report Type: 
  Country: None (occurrence: None)
  Receive Date: 20060309
  Receipt Date: 20060309
  Transmission Date: 20060701
  Serious: Yes (Death, Hospitalization)
  Sender: FDA-Public Use
  Company Number: None

PATIENT
  Age: 84 Year
  Sex: Male
  Weight: 111 kg

DRUGS (10)
  1. WARFARIN [Suspect]
     Indication: TRANSIENT ISCHAEMIC ATTACK
     Dosage: SEE IMAGE DAILY ORAL
     Route: 048
  2. AMITRIPTYLINE HCL [Concomitant]
  3. FLUOXETINE HCL [Concomitant]
  4. LORAZEPAM [Concomitant]
  5. METOPROLOL [Concomitant]
  6. OMEPRAZOLE [Concomitant]
  7. POTASSIUM CHLORIDE [Concomitant]
  8. ROSUVASTATIN [Concomitant]
  9. TRIAMTERENE AND HYDROCHLOROTHIAZIDE [Concomitant]
  10. ASPIRIN [Concomitant]

REACTIONS (11)
  - ASTHENIA [None]
  - BRAIN SCAN ABNORMAL [None]
  - CEREBRAL HAEMORRHAGE [None]
  - CONVULSION [None]
  - DYSARTHRIA [None]
  - FACIAL PALSY [None]
  - HEMIPARESIS [None]
  - HYPERTENSION [None]
  - PLATELET COUNT INCREASED [None]
  - SHIFT TO THE LEFT [None]
  - WHITE BLOOD CELL COUNT INCREASED [None]
